FAERS Safety Report 4385755-7 (Version None)
Quarter: 2004Q2

REPORT INFORMATION
  Report Type: 
  Country: None (occurrence: None)
  Receive Date: 20040623
  Receipt Date: 20040615
  Transmission Date: 20050107
  Serious: Yes (Hospitalization)
  Sender: FDA-Public Use
  Company Number: 2004SE03363

PATIENT
  Age: 70 Year
  Sex: Male

DRUGS (1)
  1. BLOPRESS [Suspect]
     Indication: HYPERTENSION
     Dosage: 4 MG PO
     Route: 048
     Dates: start: 20040510, end: 20040605

REACTIONS (2)
  - EXTRASYSTOLES [None]
  - VENTRICULAR ARRHYTHMIA [None]
